FAERS Safety Report 10872497 (Version 13)
Quarter: 2016Q1

REPORT INFORMATION
  Report Type: Report from Study
  Country: GB (occurrence: GB)
  Receive Date: 20150227
  Receipt Date: 20160209
  Transmission Date: 20160525
  Serious: Yes (Death, Life-Threatening, Hospitalization, Other)
  Sender: FDA-Public Use
  Company Number: GB-ROCHE-1545131

PATIENT
  Age: 89 Year
  Sex: Male
  Weight: 68.2 kg

DRUGS (16)
  1. RANIBIZUMAB [Suspect]
     Active Substance: RANIBIZUMAB
     Dosage: 0.5 MG/0.05 ML
     Route: 050
     Dates: start: 20150702, end: 20150702
  2. OMEPRAZOLE. [Suspect]
     Active Substance: OMEPRAZOLE
     Indication: HYPONATRAEMIA
     Route: 048
     Dates: start: 201504, end: 20150625
  3. BUMETANIDE. [Concomitant]
     Active Substance: BUMETANIDE
     Route: 065
     Dates: start: 20130614, end: 20150312
  4. RANIBIZUMAB [Suspect]
     Active Substance: RANIBIZUMAB
     Dosage: 0.5 MG/0.05 ML
     Route: 050
     Dates: start: 20141029
  5. RAMIPRIL. [Suspect]
     Active Substance: RAMIPRIL
     Indication: CARDIAC FAILURE CONGESTIVE
     Route: 048
     Dates: start: 20130619, end: 20150316
  6. SPIRONOLACTONE. [Suspect]
     Active Substance: SPIRONOLACTONE
     Indication: HYPONATRAEMIA
     Route: 048
     Dates: start: 20150316, end: 20150612
  7. SPIRONOLACTONE. [Suspect]
     Active Substance: SPIRONOLACTONE
     Indication: LEFT VENTRICULAR DYSFUNCTION
     Route: 048
     Dates: start: 20150618, end: 20150715
  8. FUROSEMIDE. [Suspect]
     Active Substance: FUROSEMIDE
     Route: 048
     Dates: start: 20150316, end: 20150612
  9. RANIBIZUMAB [Suspect]
     Active Substance: RANIBIZUMAB
     Dosage: 0.5 MG/0.05 ML
     Route: 050
     Dates: start: 20141229, end: 20141229
  10. FUROSEMIDE. [Suspect]
     Active Substance: FUROSEMIDE
     Indication: HYPONATRAEMIA
     Route: 042
     Dates: start: 20150312, end: 20150316
  11. RANIBIZUMAB [Suspect]
     Active Substance: RANIBIZUMAB
     Indication: NEOVASCULAR AGE-RELATED MACULAR DEGENERATION
     Dosage: 0.5 MG/0.05 ML
     Route: 050
     Dates: start: 20120509
  12. RANIBIZUMAB [Suspect]
     Active Substance: RANIBIZUMAB
     Dosage: 0.5 MG/0.05 ML
     Route: 050
     Dates: start: 20150216, end: 20150216
  13. RANIBIZUMAB [Suspect]
     Active Substance: RANIBIZUMAB
     Dosage: 0.5 MG/0.05 ML
     Route: 050
     Dates: start: 20131123
  14. ATORVASTATIN [Concomitant]
     Active Substance: ATORVASTATIN
     Route: 065
     Dates: start: 20150216
  15. RAMIPRIL. [Suspect]
     Active Substance: RAMIPRIL
     Route: 048
     Dates: start: 20150316, end: 20150612
  16. PREDNISOLONE. [Concomitant]
     Active Substance: PREDNISOLONE
     Route: 065
     Dates: start: 20130605

REACTIONS (13)
  - Left ventricular dysfunction [Not Recovered/Not Resolved]
  - Ventricular tachycardia [Unknown]
  - Myocardial infarction [Fatal]
  - Circulatory collapse [Recovered/Resolved]
  - Hyponatraemia [Recovering/Resolving]
  - Cardiac arrest [Recovered/Resolved]
  - Chronic obstructive pulmonary disease [Recovered/Resolved]
  - Cardiac failure [Not Recovered/Not Resolved]
  - Pneumonia [Recovered/Resolved]
  - Orthostatic hypotension [Not Recovered/Not Resolved]
  - Staphylococcal bacteraemia [Recovered/Resolved]
  - Concomitant disease progression [Unknown]
  - Myalgia [Recovered/Resolved]

NARRATIVE: CASE EVENT DATE: 20150216
